FAERS Safety Report 17644874 (Version 1)
Quarter: 2020Q2

REPORT INFORMATION
  Report Type: Spontaneous
  Country: US (occurrence: US)
  Receive Date: 20200408
  Receipt Date: 20200408
  Transmission Date: 20200713
  Serious: No
  Sender: FDA-Public Use
  Company Number: None

PATIENT
  Age: 25 Year
  Sex: Female

DRUGS (1)
  1. TOBRAMYCIN NEB 300MG/5ML [Suspect]
     Active Substance: TOBRAMYCIN
     Route: 055
     Dates: start: 2018

REACTIONS (4)
  - Pruritus [None]
  - Skin burning sensation [None]
  - Erythema [None]
  - Alopecia [None]

NARRATIVE: CASE EVENT DATE: 20200105
